FAERS Safety Report 8013552-X (Version None)
Quarter: 2011Q4

REPORT INFORMATION
  Report Type: 
  Country: None (occurrence: None)
  Receive Date: 20111229
  Receipt Date: 20111219
  Transmission Date: 20120403
  Serious: Yes (Disabling)
  Sender: FDA-Public Use
  Company Number: GB-TEVA-314028ISR

PATIENT
  Sex: Male

DRUGS (18)
  1. PHENYTOIN [Concomitant]
     Dosage: TAKEN AT NIGHT
  2. LEVETIRACETAM [Concomitant]
  3. IRBESARTAN [Concomitant]
  4. SCOPODERM [Concomitant]
     Dosage: ONE PATCH BEHIND EAR FOR 3 DAYS
  5. CLARITHROMYCIN [Concomitant]
     Dosage: 250MG/5ML
  6. OMEPRAZOLE [Concomitant]
  7. ABDEC [Concomitant]
     Dosage: TAKEN IN MORNING
  8. VITAMIN B COMPOUND [Concomitant]
  9. LACTULOSE [Concomitant]
     Dosage: 3.1 - 3.7G/5ML
  10. GALANTAMINE HYDROBROMIDE [Concomitant]
  11. THIAMINE HCL [Concomitant]
  12. DOMPERIDONE [Concomitant]
  13. AMLODIPINE [Concomitant]
  14. TRIMETHOPRIM [Concomitant]
     Dosage: TAKEN AT NIGHT
  15. LEVOTHYROXINE SODIUM [Concomitant]
     Dosage: 100MCG AND 50MCG TABLETS; TAKE 1 DAILY
  16. PRAVASTATIN [Suspect]
     Indication: HYPERCHOLESTEROLAEMIA
     Dates: end: 20101203
  17. CETRABEN EMOLLIENT CREAM [Concomitant]
  18. ASPIRIN [Concomitant]
     Dosage: TAKE AT NIGHT

REACTIONS (4)
  - DYSPHONIA [None]
  - COMMUNICATION DISORDER [None]
  - DYSPHAGIA [None]
  - UNRESPONSIVE TO STIMULI [None]
